FAERS Safety Report 8741651 (Version 2)
Quarter: 2012Q4

REPORT INFORMATION
  Report Type: 
  Country: NL (occurrence: NL)
  Receive Date: 20120824
  Receipt Date: 20120924
  Transmission Date: 20130627
  Serious: Yes (Life-Threatening, Hospitalization)
  Sender: FDA-Public Use
  Company Number: NL-AMGEN-NLDSP2012052895

PATIENT
  Sex: Female

DRUGS (1)
  1. ENBREL [Suspect]
     Indication: PSORIATIC ARTHROPATHY
     Dosage: 50 mg, weekly
     Dates: start: 2008

REACTIONS (4)
  - Cyst [Recovering/Resolving]
  - Wound dehiscence [Recovering/Resolving]
  - Impaired healing [Recovering/Resolving]
  - Bacterial infection [Recovering/Resolving]
